FAERS Safety Report 8855855 (Version 1)
Quarter: 2012Q4

REPORT INFORMATION
  Report Type: Spontaneous
  Country: US (occurrence: None)
  Receive Date: 20121022
  Receipt Date: 20121022
  Transmission Date: 20130627
  Serious: No
  Sender: FDA-Public Use
  Company Number: None

PATIENT
  Age: 60 Year
  Sex: Female
  Weight: 81.65 kg

DRUGS (2)
  1. NOVOLOG [Suspect]
     Indication: TYPE II DIABETES MELLITUS
     Dosage: 20 units - 20-25 or more three times a day
     Dates: start: 20120701, end: 20121018
  2. LEVEMIR [Suspect]
     Indication: TYPE II DIABETES MELLITUS
     Dosage: 45 2 times a day
     Dates: start: 20120701, end: 20121019

REACTIONS (3)
  - Injection site nodule [None]
  - Injection site swelling [None]
  - Injection site pain [None]
